FAERS Safety Report 4392564-1 (Version None)
Quarter: 2004Q3

REPORT INFORMATION
  Report Type: 
  Country: None (occurrence: None)
  Receive Date: 20040708
  Receipt Date: 20040625
  Transmission Date: 20050211
  Serious: Yes (Hospitalization, Other)
  Sender: FDA-Public Use
  Company Number: 200412490FR

PATIENT
  Age: 68 Year
  Sex: Male

DRUGS (3)
  1. FLAGYL [Suspect]
     Indication: DIVERTICULITIS
     Dosage: DOSE: 500-0-500
     Route: 048
     Dates: start: 19950101, end: 20040624
  2. LIBRAX [Concomitant]
  3. ALCOHOL [Concomitant]
     Dates: start: 20031201, end: 20031201

REACTIONS (7)
  - ABDOMINAL PAIN [None]
  - ALCOHOL USE [None]
  - BURNING SENSATION [None]
  - DIARRHOEA [None]
  - ERYTHEMA [None]
  - PAIN IN EXTREMITY [None]
  - SWOLLEN TONGUE [None]
